FAERS Safety Report 6083648-0 (Version None)
Quarter: 2009Q1

REPORT INFORMATION
  Report Type: 
  Country: None (occurrence: None)
  Receive Date: 20090219
  Receipt Date: 20090217
  Transmission Date: 20090719
  Serious: Yes (Death)
  Sender: FDA-Public Use
  Company Number: PHHY2009MX05736

PATIENT
  Age: 81 Year
  Sex: Female

DRUGS (1)
  1. STALEVO 100 [Suspect]
     Indication: PARKINSON'S DISEASE
     Dosage: 2 TABLETS PER DAY (200 E/50 L/12.5 C MG)
     Route: 048
     Dates: start: 20070601, end: 20090101

REACTIONS (1)
  - DEATH [None]
